FAERS Safety Report 9214771 (Version 3)
Quarter: 2013Q2

REPORT INFORMATION
  Report Type: Spontaneous
  Country: US (occurrence: US)
  Receive Date: 20130405
  Receipt Date: 20130626
  Transmission Date: 20140414
  Serious: Yes (Death, Hospitalization, Other)
  Sender: FDA-Public Use
  Company Number: US-CELGENEUS-163-21880-13021721

PATIENT
  Age: 64 Year
  Sex: Male

DRUGS (33)
  1. REVLIMID [Suspect]
     Indication: PLASMA CELL MYELOMA
     Dosage: 25 MILLIGRAM
     Route: 048
     Dates: start: 20121217
  2. REVLIMID [Suspect]
     Dosage: 15 MILLIGRAM
     Route: 048
     Dates: start: 201301
  3. VELCADE [Suspect]
     Indication: PRODUCT USED FOR UNKNOWN INDICATION
     Route: 065
  4. DEXAMETHASONE [Concomitant]
     Indication: PRODUCT USED FOR UNKNOWN INDICATION
     Route: 065
  5. ACYCLOVIR [Concomitant]
     Indication: PRODUCT USED FOR UNKNOWN INDICATION
     Route: 065
  6. SALINE [Concomitant]
     Indication: HYPONATRAEMIA
     Route: 065
  7. LACTULOSE [Concomitant]
     Indication: HYPERAMMONAEMIA
     Route: 065
  8. REMERON [Concomitant]
     Indication: DEPRESSION
     Route: 065
  9. REMERON [Concomitant]
     Indication: ANXIETY
     Route: 065
  10. ACETAMINOPHEN [Concomitant]
     Indication: PYREXIA
     Dosage: 2000 MILLIGRAM
     Route: 048
  11. ACETAMINOPHEN [Concomitant]
     Indication: PAIN
     Route: 065
  12. XANAX [Concomitant]
     Indication: PRODUCT USED FOR UNKNOWN INDICATION
     Dosage: 1.5 MILLIGRAM
     Route: 048
  13. XANAX [Concomitant]
     Indication: PAIN
     Route: 065
  14. ZYRTEC [Concomitant]
     Indication: PRODUCT USED FOR UNKNOWN INDICATION
     Dosage: 10 MILLIGRAM
     Route: 048
  15. ZYRTEC [Concomitant]
     Indication: PAIN
     Route: 065
  16. CITALOPRAM [Concomitant]
     Indication: PRODUCT USED FOR UNKNOWN INDICATION
     Dosage: 30 MILLIGRAM
     Route: 048
  17. CITALOPRAM [Concomitant]
     Indication: PAIN
     Route: 065
  18. DOCUSATE SODIUM [Concomitant]
     Indication: PRODUCT USED FOR UNKNOWN INDICATION
     Dosage: 100 MILLIGRAM
     Route: 048
  19. DOCUSATE SODIUM [Concomitant]
     Indication: PAIN
     Route: 065
  20. LISINOPRIL [Concomitant]
     Indication: PRODUCT USED FOR UNKNOWN INDICATION
     Dosage: 10 MILLIGRAM
     Route: 048
  21. LISINOPRIL [Concomitant]
     Indication: PAIN
     Route: 065
  22. METOPROLOL [Concomitant]
     Indication: TACHYCARDIA
     Dosage: 50 MILLIGRAM
     Route: 048
  23. METOPROLOL [Concomitant]
     Indication: PAIN
     Route: 065
  24. MIRTAZAPINE [Concomitant]
     Indication: PRODUCT USED FOR UNKNOWN INDICATION
     Dosage: 7.5 MILLIGRAM
     Route: 048
  25. MIRTAZAPINE [Concomitant]
     Indication: PAIN
     Route: 065
  26. OXYCODONE [Concomitant]
     Indication: PRODUCT USED FOR UNKNOWN INDICATION
     Dosage: 5-10MG
     Route: 048
  27. OXYCODONE [Concomitant]
     Indication: PAIN
     Route: 065
  28. POLYETHYLENE GLYCOL [Concomitant]
     Indication: PRODUCT USED FOR UNKNOWN INDICATION
     Dosage: 1 PACKET
     Route: 048
  29. POLYETHYLENE GLYCOL [Concomitant]
     Indication: PAIN
     Route: 065
  30. SALINE NASAL SPRAY [Concomitant]
     Indication: PRODUCT USED FOR UNKNOWN INDICATION
     Route: 045
  31. SALINE NASAL SPRAY [Concomitant]
     Indication: PAIN
     Route: 065
  32. AMBIEN [Concomitant]
     Indication: PRODUCT USED FOR UNKNOWN INDICATION
     Dosage: 10 MILLIGRAM
     Route: 048
  33. AMBIEN [Concomitant]
     Indication: PAIN
     Route: 065

REACTIONS (10)
  - Plasma cell myeloma [Fatal]
  - Pancytopenia [Not Recovered/Not Resolved]
  - Hepatic failure [Not Recovered/Not Resolved]
  - Malnutrition [Not Recovered/Not Resolved]
  - Failure to thrive [Not Recovered/Not Resolved]
  - Disseminated cytomegaloviral infection [Recovered/Resolved]
  - Infective glossitis [Recovered/Resolved]
  - Pyrexia [Recovered/Resolved]
  - Cholelithiasis [Unknown]
  - Gastrointestinal candidiasis [Recovered/Resolved]
